FAERS Safety Report 9513494 (Version 1)
Quarter: 2013Q3

REPORT INFORMATION
  Report Type: Spontaneous
  Country: US (occurrence: US)
  Receive Date: 20130910
  Receipt Date: 20130910
  Transmission Date: 20140515
  Serious: No
  Sender: FDA-Public Use
  Company Number: US-TARO-2013P1005830

PATIENT
  Age: 68 Year
  Sex: Male

DRUGS (3)
  1. WARFARIN SODIUM TABLETS USP 7.5MG [Suspect]
     Route: 048
  2. WARFARIN SODIUM TABLETS USP 7.5MG [Suspect]
     Route: 048
  3. UNSPECIFIED MEDICATIONS [Concomitant]

REACTIONS (1)
  - International normalised ratio abnormal [Unknown]
